FAERS Safety Report 10367497 (Version 1)
Quarter: 2014Q3

REPORT INFORMATION
  Report Type: Spontaneous
  Country: FR (occurrence: None)
  Receive Date: 20140805
  Receipt Date: 20140805
  Transmission Date: 20150326
  Serious: Yes (Hospitalization)
  Sender: FDA-Public Use
  Company Number: 2459405

PATIENT
  Age: 63 Year
  Sex: Male

DRUGS (1)
  1. (CARBOPLATIN) [Suspect]
     Active Substance: CARBOPLATIN
     Indication: LUNG ADENOCARCINOMA METASTATIC
     Dosage: NOT SPECIFIED; DURING SECOND COURSE OF REOCCURRENCE (1 CYCLICAL)
     Route: 041
     Dates: start: 201405

REACTIONS (4)
  - Feeling hot [None]
  - Hypersensitivity [None]
  - Chest discomfort [None]
  - Urticaria [None]

NARRATIVE: CASE EVENT DATE: 201405
